FAERS Safety Report 5172022-7 (Version None)
Quarter: 2006Q4

REPORT INFORMATION
  Report Type: 
  Country: None (occurrence: None)
  Receive Date: 20061205
  Receipt Date: 20061116
  Transmission Date: 20070319
  Serious: No
  Sender: FDA-Public Use
  Company Number: TPA2006A02072

PATIENT
  Age: 67 Year
  Sex: Female

DRUGS (1)
  1. ACTOPLUS MET [Suspect]
     Dosage: 15/850 MG, 1 IN 1 D, PER ORAL
     Route: 048
     Dates: start: 20060901

REACTIONS (1)
  - DRUG DISPENSING ERROR [None]
